FAERS Safety Report 9790828 (Version 2)
Quarter: 2014Q1

REPORT INFORMATION
  Report Type: Report from Study
  Country: JP (occurrence: JP)
  Receive Date: 20131231
  Receipt Date: 20140203
  Transmission Date: 20141002
  Serious: Yes (Hospitalization, Other)
  Sender: FDA-Public Use
  Company Number: JP-TAKEDA-2013TJP004351

PATIENT
  Age: 77 Year
  Sex: Female

DRUGS (6)
  1. LANSOPRAZOLE [Suspect]
     Indication: PROPHYLAXIS AGAINST GASTROINTESTINAL ULCER
     Dosage: 15 MG, QD
     Route: 048
     Dates: start: 20120204
  2. BLOPRESS [Concomitant]
     Dosage: 4 MG, 1 DAYS
     Route: 048
  3. CELECOX [Concomitant]
     Indication: OSTEOARTHRITIS
     Dosage: 200 MG, 1 DAYS
     Route: 048
  4. SEPAMIT-R [Concomitant]
     Dosage: 10 MG, 1 DAYS
     Route: 048
  5. MEVARICH [Concomitant]
     Dosage: 10 MG, 1 DAYS
     Route: 048
  6. DAIKENTYUTO [Concomitant]
     Dosage: 3 DF, 1 DAYS
     Route: 048

REACTIONS (1)
  - Pancreatic carcinoma [Recovering/Resolving]
